FAERS Safety Report 16246796 (Version 1)
Quarter: 2019Q2

REPORT INFORMATION
  Report Type: Spontaneous
  Country: ES (occurrence: ES)
  Receive Date: 20190427
  Receipt Date: 20190427
  Transmission Date: 20190711
  Serious: Yes (Life-Threatening)
  Sender: FDA-Public Use
  Company Number: ES-ACCORD-124362

PATIENT
  Age: 76 Year
  Sex: Male
  Weight: 74 kg

DRUGS (6)
  1. BRILIQUE [Suspect]
     Active Substance: TICAGRELOR
     Indication: ANEURYSM
     Dosage: 90MG/12H
     Route: 048
     Dates: start: 20160701, end: 20181201
  2. RAMIPRIL. [Suspect]
     Active Substance: RAMIPRIL
     Indication: ANEURYSM
     Route: 048
     Dates: start: 20160601
  3. BISOPROLOL [Suspect]
     Active Substance: BISOPROLOL
     Indication: ANEURYSM
     Route: 048
     Dates: start: 20160601
  4. OMEPRAZOLE. [Suspect]
     Active Substance: OMEPRAZOLE
     Indication: PROPHYLAXIS AGAINST GASTROINTESTINAL ULCER
     Dosage: STRENGTH 20 MG
     Route: 048
     Dates: start: 20160101
  5. ATORVASTATIN/ATORVASTATIN CALCIUM [Suspect]
     Active Substance: ATORVASTATIN CALCIUM
     Indication: ANEURYSM
     Route: 048
     Dates: start: 20160601
  6. ADIRO [Suspect]
     Active Substance: ASPIRIN
     Indication: PLATELET AGGREGATION
     Route: 048
     Dates: start: 20160101

REACTIONS (2)
  - Prostate cancer [Not Recovered/Not Resolved]
  - Off label use [Unknown]

NARRATIVE: CASE EVENT DATE: 20180601
